FAERS Safety Report 16585567 (Version 7)
Quarter: 2024Q3

REPORT INFORMATION
  Report Type: Report from Study
  Country: JP (occurrence: JP)
  Receive Date: 20190717
  Receipt Date: 20240917
  Transmission Date: 20241016
  Serious: Yes (Hospitalization, Other)
  Sender: GILEAD
  Company Number: JP-GILEAD-2019-0417748

PATIENT
  Age: 79 Year
  Sex: Male
  Weight: 59.3 kg

DRUGS (16)
  1. SOFOSBUVIR\VELPATASVIR [Suspect]
     Active Substance: SOFOSBUVIR\VELPATASVIR
     Indication: Hepatitis C
     Dosage: 1 DOSAGE FORM, QD (MORNING)
     Route: 048
     Dates: start: 20190704, end: 20190723
  2. SOFOSBUVIR\VELPATASVIR [Suspect]
     Active Substance: SOFOSBUVIR\VELPATASVIR
     Indication: Hepatic cirrhosis
  3. RIFAXIMIN [Concomitant]
     Active Substance: RIFAXIMIN
     Dosage: 200 MG, TID
     Route: 048
     Dates: start: 20190412
  4. FUROSEMIDE [Concomitant]
     Active Substance: FUROSEMIDE
     Dosage: 20 MG, QD (MORNING)
     Route: 048
     Dates: start: 20190405, end: 20190713
  5. FUROSEMIDE [Concomitant]
     Active Substance: FUROSEMIDE
     Dosage: 2 ML, UNK
     Route: 042
     Dates: start: 20190902
  6. SPIRONOLACTONE [Concomitant]
     Active Substance: SPIRONOLACTONE
     Dosage: 25 MG, QD (MORNING)
     Route: 048
     Dates: start: 20190405, end: 20190713
  7. LIVACT [ISOLEUCINE;LEUCINE;VALINE] [Concomitant]
     Dosage: 1 DOSAGE FORM, TID
     Route: 048
  8. CARTIN [LEVOCARNITINE] [Concomitant]
     Dosage: 500 MG, TID
     Route: 048
  9. MAGNESIUM OXIDE [Concomitant]
     Active Substance: MAGNESIUM OXIDE
     Dosage: 330 MG, TID
     Route: 048
  10. AMLODIPINE BESYLATE\AZILSARTAN [Concomitant]
     Active Substance: AMLODIPINE BESYLATE\AZILSARTAN
     Dosage: 1 DOSAGE FORM, QD (EVENING)
     Route: 048
  11. POLAPREZINC [Concomitant]
     Active Substance: POLAPREZINC
     Dosage: 1 DOSAGE FORM, BID (MORNING AND EVENING)
     Route: 048
  12. ESOMEPRAZOLE MAGNESIUM [Concomitant]
     Active Substance: ESOMEPRAZOLE MAGNESIUM
     Dosage: 20 MG, QD (MORNING)
     Route: 048
  13. JANUVIA [Concomitant]
     Active Substance: SITAGLIPTIN PHOSPHATE
     Dosage: 50 MG, QD (MORNING)
     Route: 048
  14. TORSEMIDE [Concomitant]
     Active Substance: TORSEMIDE
     Dosage: 4 MG, QD (MORNING)
     Route: 048
  15. LACTULOSE [Concomitant]
     Active Substance: LACTULOSE
     Dosage: 20 ML, TID
     Route: 048
  16. ISOSORBIDE MONONITRATE [Concomitant]
     Active Substance: ISOSORBIDE MONONITRATE
     Dosage: 20 MG, BID (MORNING AND EVENING)
     Route: 048

REACTIONS (4)
  - Hepatic encephalopathy [Recovering/Resolving]
  - Ascites [Recovering/Resolving]
  - Hepatitis C [Unknown]
  - Drug ineffective [Unknown]

NARRATIVE: CASE EVENT DATE: 20190709
